FAERS Safety Report 20416931 (Version 1)
Quarter: 2022Q1

REPORT INFORMATION
  Report Type: Spontaneous
  Country: HU (occurrence: HU)
  Receive Date: 20220202
  Receipt Date: 20220202
  Transmission Date: 20220423
  Serious: Yes (Other)
  Sender: FDA-Public Use
  Company Number: HU-NOVARTISPH-NVSC2022HU006273

PATIENT
  Age: 67 Year
  Sex: Female

DRUGS (2)
  1. TAFINLAR [Suspect]
     Active Substance: DABRAFENIB MESYLATE
     Indication: Metastatic malignant melanoma
     Dosage: UNK UNK (DOSE WAS REDUCED TO 75 PERCENT) FROM CYCLE 5
     Route: 065
  2. MEKINIST [Suspect]
     Active Substance: TRAMETINIB DIMETHYL SULFOXIDE
     Indication: Metastatic malignant melanoma
     Dosage: UNK, CYCLIC
     Route: 065

REACTIONS (5)
  - Metastatic malignant melanoma [Recovered/Resolved]
  - Metastases to central nervous system [Recovered/Resolved]
  - Malignant neoplasm progression [Recovered/Resolved]
  - Blood creatine phosphokinase increased [Unknown]
  - Therapy partial responder [Unknown]

NARRATIVE: CASE EVENT DATE: 20180101
